FAERS Safety Report 19293160 (Version 1)
Quarter: 2021Q2

REPORT INFORMATION
  Report Type: Spontaneous
  Country: IE (occurrence: IE)
  Receive Date: 20210524
  Receipt Date: 20210524
  Transmission Date: 20210717
  Serious: Yes (Death, Other)
  Sender: FDA-Public Use
  Company Number: IE-PFIZER INC-2021534630

PATIENT
  Age: 40 Year
  Sex: Female

DRUGS (1)
  1. DINOPROSTONE. [Suspect]
     Active Substance: DINOPROSTONE
     Indication: LABOUR INDUCTION
     Dosage: 3 MG
     Route: 067

REACTIONS (4)
  - Cerebral haemorrhage [Fatal]
  - Postpartum haemorrhage [Unknown]
  - Anaphylactoid syndrome of pregnancy [Unknown]
  - Disseminated intravascular coagulation [Unknown]
